FAERS Safety Report 7547185-6 (Version None)
Quarter: 2011Q2

REPORT INFORMATION
  Report Type: 
  Country: None (occurrence: None)
  Receive Date: 20110614
  Receipt Date: 20110603
  Transmission Date: 20111010
  Serious: Yes (Hospitalization)
  Sender: FDA-Public Use
  Company Number: PHHY2010NL47931

PATIENT
  Weight: 3.35 kg

DRUGS (7)
  1. FOLIC ACID [Concomitant]
     Route: 064
  2. VOLTAREN [Suspect]
     Dosage: 75 MG, UNK
     Route: 064
     Dates: start: 20100405, end: 20100401
  3. MEPERIDINE HCL [Suspect]
     Indication: PAIN
     Route: 064
     Dates: start: 20100405, end: 20100401
  4. S-OIV FOCETRIA 7.5AG 100% MF59 [Suspect]
     Indication: IMMUNISATION
     Dosage: 1 DF
     Route: 064
     Dates: start: 20091120, end: 20091120
  5. S-OIV FOCETRIA 7.5AG 100% MF59 [Suspect]
     Dosage: 1 DF
     Route: 064
     Dates: start: 20091211, end: 20091211
  6. REMIFENTANIL [Suspect]
     Indication: PAIN
     Route: 064
     Dates: start: 20100405
  7. PHENERGAN HCL [Suspect]
     Indication: SLEEP DISORDER
     Route: 064
     Dates: start: 20100405, end: 20100401

REACTIONS (6)
  - DYSPNOEA [None]
  - MATERNAL DRUGS AFFECTING FOETUS [None]
  - OXYGEN SATURATION [None]
  - DRUG EXPOSURE DURING PREGNANCY [None]
  - PALLOR [None]
  - GRUNTING [None]
